FAERS Safety Report 9276746 (Version 2)
Quarter: 2013Q2

REPORT INFORMATION
  Report Type: Spontaneous
  Country: US (occurrence: US)
  Receive Date: 20130507
  Receipt Date: 20130612
  Transmission Date: 20140414
  Serious: Yes (Hospitalization)
  Sender: FDA-Public Use
  Company Number: US-ELI_LILLY_AND_COMPANY-US201303005721

PATIENT
  Age: 72 Year
  Sex: Female
  Weight: 68.48 kg

DRUGS (12)
  1. FORTEO [Suspect]
     Indication: OSTEOPOROSIS
     Dosage: 20 UG, QD
     Route: 058
     Dates: start: 20130304
  2. FORTEO [Suspect]
     Dosage: 20 UG, QD
     Route: 058
     Dates: end: 20130314
  3. FORTEO [Suspect]
     Dosage: 20 UG, QD
     Route: 058
     Dates: start: 20130425
  4. OXYCONTIN [Concomitant]
  5. TRICOR [Concomitant]
  6. LASIX [Concomitant]
  7. VITAMIN D [Concomitant]
     Dosage: 1000 IU, UNK
  8. SIMVASTATIN [Concomitant]
  9. ALEVE [Concomitant]
  10. MORPHINE [Concomitant]
  11. FLAGYL [Concomitant]
  12. VOLTAREN                           /00372301/ [Concomitant]

REACTIONS (10)
  - Dehydration [Unknown]
  - Clostridium difficile colitis [Recovering/Resolving]
  - Rib fracture [Recovering/Resolving]
  - Groin pain [Unknown]
  - Burning sensation [Recovering/Resolving]
  - Pain in extremity [Unknown]
  - Cellulitis [Recovering/Resolving]
  - Malaise [Unknown]
  - Pain [Recovering/Resolving]
  - Diarrhoea [Unknown]
